FAERS Safety Report 22247293 (Version 3)
Quarter: 2023Q2

REPORT INFORMATION
  Report Type: Other
  Country: IN (occurrence: None)
  Receive Date: 20230425
  Receipt Date: 20230531
  Transmission Date: 20230721
  Serious: Yes (Hospitalization)
  Sender: FDA-Public Use
  Company Number: IN-ROCHE-3261729

PATIENT
  Age: 38 Year
  Sex: Female
  Weight: 73.1 kg

DRUGS (1)
  1. TECENTRIQ [Suspect]
     Active Substance: ATEZOLIZUMAB
     Indication: Colon cancer metastatic
     Dosage: INTERVAL 28 DAYS
     Route: 042
     Dates: start: 20230105

REACTIONS (6)
  - Off label use [Unknown]
  - Off label use [Unknown]
  - Hypotension [Unknown]
  - Diarrhoea [Recovering/Resolving]
  - Fall [Unknown]
  - Lymphoedema [Unknown]
